FAERS Safety Report 9519459 (Version 1)
Quarter: 2013Q3

REPORT INFORMATION
  Report Type: Spontaneous
  Country: US (occurrence: None)
  Receive Date: 20130911
  Receipt Date: 20130911
  Transmission Date: 20140515
  Serious: Yes (Hospitalization)
  Sender: FDA-Public Use
  Company Number: None

PATIENT
  Age: 63 Year
  Sex: Female
  Weight: 177 kg

DRUGS (8)
  1. RIVAROXABAN [Suspect]
     Dosage: 1TAB QD ORAL
     Route: 048
  2. AMITRIPTYLINE [Concomitant]
  3. ATENOLOL [Concomitant]
  4. BENAZEPRIL [Concomitant]
  5. FEBUXOSTAT [Concomitant]
  6. GLIPIZIDE [Concomitant]
  7. LOVASTATIN [Concomitant]
  8. MULTIVITAMIN [Concomitant]

REACTIONS (2)
  - Dyspnoea [None]
  - Oxygen saturation decreased [None]
